FAERS Safety Report 9065839 (Version 1)
Quarter: 2013Q1

REPORT INFORMATION
  Report Type: Spontaneous
  Country: DE (occurrence: DE)
  Receive Date: 20130214
  Receipt Date: 20130214
  Transmission Date: 20140127
  Serious: Yes (Other)
  Sender: FDA-Public Use
  Company Number: PHHY2013DE013892

PATIENT
  Age: 42 Year
  Sex: Male

DRUGS (8)
  1. CLOZAPINE [Suspect]
     Indication: SCHIZOPHRENIA, CATATONIC TYPE
     Dosage: 350 MG,
  2. CLOZAPINE [Interacting]
     Dosage: 300 MG,
  3. CLOZAPINE [Interacting]
     Dosage: 150 MG,
  4. PERAZINE [Interacting]
     Dosage: 300 MG,
  5. LITHIUM CARBONATE [Concomitant]
     Dosage: 900 MG,
  6. HALOPERIDOL [Concomitant]
     Dosage: 10 MG,
  7. LORAZEPAM [Concomitant]
     Dosage: 1 MG,
  8. TEMAZEPAM [Concomitant]
     Dosage: 10 MG,

REACTIONS (4)
  - Drug interaction [Unknown]
  - Antipsychotic drug level increased [Unknown]
  - Fear [Unknown]
  - Agitation [Unknown]
